FAERS Safety Report 17072302 (Version 1)
Quarter: 2019Q4

REPORT INFORMATION
  Report Type: Spontaneous
  Country: FR (occurrence: FR)
  Receive Date: 20191125
  Receipt Date: 20191125
  Transmission Date: 20200122
  Serious: Yes (Hospitalization)
  Sender: FDA-Public Use
  Company Number: FR-MYLANLABS-2019M1112909

PATIENT
  Age: 61 Year
  Sex: Male

DRUGS (4)
  1. DASATINIB. [Suspect]
     Active Substance: DASATINIB
     Indication: CHRONIC MYELOID LEUKAEMIA
     Dosage: 100 MILLIGRAM, QD
     Route: 065
     Dates: start: 200812, end: 201012
  2. IMATINIB. [Suspect]
     Active Substance: IMATINIB MESYLATE
     Indication: CHRONIC MYELOID LEUKAEMIA
     Dosage: 600 MILLIGRAM, QD
     Route: 065
     Dates: end: 200812
  3. BOSUTINIB [Suspect]
     Active Substance: BOSUTINIB
     Indication: CHRONIC MYELOID LEUKAEMIA
     Dosage: 400 MILLIGRAM, QD
     Route: 065
     Dates: start: 201508, end: 201805
  4. NILOTINIB [Suspect]
     Active Substance: NILOTINIB
     Indication: CHRONIC MYELOID LEUKAEMIA
     Dosage: 200 MG IN THE MORNING AND 400 MG IN THE EVENING
     Route: 065
     Dates: start: 201012, end: 201508

REACTIONS (2)
  - Carotid artery stenosis [Recovering/Resolving]
  - Carotid arteriosclerosis [Recovering/Resolving]
